FAERS Safety Report 16145794 (Version 2)
Quarter: 2019Q2

REPORT INFORMATION
  Report Type: Spontaneous
  Country: US (occurrence: US)
  Receive Date: 20190402
  Receipt Date: 20190621
  Transmission Date: 20190711
  Serious: No
  Sender: FDA-Public Use
  Company Number: US-BIOGEN-2019BI00717758

PATIENT
  Sex: Female

DRUGS (1)
  1. AVONEX [Suspect]
     Active Substance: INTERFERON BETA-1A
     Indication: MULTIPLE SCLEROSIS
     Route: 030
     Dates: start: 20120208

REACTIONS (4)
  - Vomiting [Recovered/Resolved]
  - Influenza like illness [Recovered/Resolved]
  - Memory impairment [Not Recovered/Not Resolved]
  - Gastric disorder [Recovered/Resolved]
